FAERS Safety Report 26007768 (Version 2)
Quarter: 2025Q4

REPORT INFORMATION
  Report Type: Report from Study
  Country: US (occurrence: US)
  Receive Date: 20251106
  Receipt Date: 20251110
  Transmission Date: 20260118
  Serious: Yes (Hospitalization)
  Sender: IOVANCE BIOTHERAPEUTICS MANUFACTURING LLC
  Company Number: None

PATIENT
  Age: 70 Year
  Sex: Female
  Weight: 68 kg

DRUGS (96)
  1. PROLEUKIN [Suspect]
     Active Substance: ALDESLEUKIN
     Indication: Product used for unknown indication
     Dosage: 41
     Route: 065
     Dates: start: 20251016, end: 20251016
  2. CYCLOPHOSPHAMIDE [Suspect]
     Active Substance: CYCLOPHOSPHAMIDE
     Dosage: 0
     Route: 065
  3. FLUDARABINE [Suspect]
     Active Substance: FLUDARABINE PHOSPHATE
     Dosage: 33
     Route: 065
     Dates: start: 20251010
  4. LIFILEUCEL [Suspect]
     Active Substance: LIFILEUCEL
     Dosage: 300
     Route: 065
     Dates: start: 20251015, end: 20251015
  5. LORATADINE [Concomitant]
     Active Substance: LORATADINE
     Dosage: 10 MG, QD
     Dates: start: 19930101
  6. METOPROLOL TARTRATE [Concomitant]
     Active Substance: METOPROLOL TARTRATE
     Dosage: 25 MG, QD
     Dates: start: 20190101, end: 20251014
  7. VITAMINS [Concomitant]
     Active Substance: VITAMINS
     Dosage: 1 TABLET, QD
     Dates: start: 20190101
  8. VITAMIN B12 [Concomitant]
     Active Substance: CYANOCOBALAMIN
     Dosage: 1 TABLET, QD
     Dates: start: 20190101
  9. SENNA [Concomitant]
     Active Substance: SENNOSIDES
     Dosage: 8.6-50 MG, PRN (AS NEEDED)
     Dates: start: 20220601
  10. FAMOTIDINE [Concomitant]
     Active Substance: FAMOTIDINE
     Dosage: 1 TABLET, QD
     Dates: start: 20230101
  11. OMEPRAZOLE [Concomitant]
     Active Substance: OMEPRAZOLE
     Dosage: 20 MG, QD
     Dates: start: 20230101
  12. OXYBUTYNIN [Concomitant]
     Active Substance: OXYBUTYNIN
     Dosage: 5 MG, QD
     Dates: start: 20240101, end: 20250925
  13. BUSPIRONE [Concomitant]
     Active Substance: BUSPIRONE HYDROCHLORIDE
     Dosage: 5 MG, QD
     Dates: start: 20250201, end: 20251011
  14. MIRALAX [Concomitant]
     Active Substance: POLYETHYLENE GLYCOL 3350
     Dosage: 17 GRAM, PRN (AS NEEDED)
     Dates: start: 20250201
  15. DULOXETINE [Concomitant]
     Active Substance: DULOXETINE
     Dosage: 20 MG, QD
     Dates: start: 20250301
  16. FENTANYL [Concomitant]
     Active Substance: FENTANYL
     Dosage: 25 OTHER~MCG/HR, OTHER~Q72HRS
     Dates: start: 20250721
  17. ACETAMINOPHEN\OXYCODONE HYDROCHLORIDE [Concomitant]
     Active Substance: ACETAMINOPHEN\OXYCODONE HYDROCHLORIDE
     Dosage: 7.5-325 MG, OTHER~Q4HRS PRN
     Dates: start: 20250721
  18. TOLNAFTATE [Concomitant]
     Active Substance: TOLNAFTATE
     Dosage: 1 APPLICATION, BID (TWICE DAILY)
     Route: 061
     Dates: start: 20250910
  19. FENTANYL [Concomitant]
     Active Substance: FENTANYL
     Dosage: 50 OTHER~MCG/HR, OTHER~Q72 HRS
     Dates: start: 20250912
  20. ETHANOL TOPICAL [Concomitant]
     Dosage: 1 APPLICATION, BID (TWICE DAILY)
     Dates: start: 20250924, end: 20250925
  21. LOVENOX [Concomitant]
     Active Substance: ENOXAPARIN SODIUM
     Dosage: 40 MG, QD
     Dates: start: 20250924, end: 20250925
  22. MAGNESIUM CITRATE [Concomitant]
     Active Substance: MAGNESIUM CITRATE
     Dosage: 300 ML, ONCE
     Dates: start: 20250925, end: 20250925
  23. PANTOPRAZOLE [Concomitant]
     Active Substance: PANTOPRAZOLE
     Dosage: 40 MG, QD
     Dates: start: 20250925, end: 20250926
  24. SODIUM CHLORIDE [Concomitant]
     Active Substance: SODIUM CHLORIDE
     Dosage: 2000 MG, OTHER~Q8HRS
     Dates: start: 20250925, end: 20250926
  25. MAGNESIUM CITRATE [Concomitant]
     Active Substance: MAGNESIUM CITRATE
     Dosage: 300 ML, QD
     Dates: start: 20250926
  26. MICRABEGRON [Concomitant]
     Dosage: 25 MG, QD
     Dates: start: 20250926
  27. SODIUM CHLORIDE [Concomitant]
     Active Substance: SODIUM CHLORIDE
     Dosage: 1000 MG, BID (TWICE DAILY)
     Dates: start: 20250926
  28. ZINC SULFATE [Concomitant]
     Active Substance: ZINC SULFATE
     Dosage: 220 MG, QD
     Dates: start: 20250926, end: 20251017
  29. HUMAN RED BLOOD CELL [Concomitant]
     Active Substance: HUMAN RED BLOOD CELL
     Dosage: 2 OTHER~UNITS, ONCE
     Dates: start: 20251001, end: 20251001
  30. FENTANYL TRANSDERMAL SYSTEM [Concomitant]
     Active Substance: FENTANYL
     Dosage: 75 OTHER~MCG/HR, CONTINUOUS
     Dates: start: 20251009, end: 20251012
  31. APREPITANT [Concomitant]
     Active Substance: APREPITANT
     Dosage: 130 MG, ONCE
     Dates: start: 20251010, end: 20251010
  32. CEFEPIME [Concomitant]
     Active Substance: CEFEPIME HYDROCHLORIDE
     Dosage: 2 GRAM, OTHER~Q8HRS
     Dates: start: 20251010, end: 20251015
  33. ENOXAPARIN [Concomitant]
     Active Substance: ENOXAPARIN
     Dosage: 4 MG, QD
     Dates: start: 20251010
  34. ETHANOL TOPICAL [Concomitant]
     Dosage: 1 APPLICATION, BID (TWICE DAILY)
     Dates: start: 20251010
  35. MAGNESIUM OXIDE [Concomitant]
     Active Substance: MAGNESIUM OXIDE
     Dosage: 400 MG, BID (TWICE DAILY)
     Dates: start: 20251010
  36. MELATONIN [Concomitant]
     Active Substance: MELATONIN
     Dosage: 8 MG, OTHER~QHS (AT EVERY BEDTIME)
     Dates: start: 20251010
  37. MESNA [Concomitant]
     Active Substance: MESNA
     Dosage: 1350
     Dates: start: 20251010, end: 20251010
  38. OXYCODONE [Concomitant]
     Active Substance: OXYCODONE
     Dosage: 10 MG, OTHER~Q6H PRN
     Dates: start: 20251010
  39. PALONOSETRON [Concomitant]
     Active Substance: PALONOSETRON
     Dosage: 0.25 MG, ONCE
     Dates: start: 20251010, end: 20251010
  40. PANTOPRAZOLE [Concomitant]
     Active Substance: PANTOPRAZOLE
     Dosage: 40 MG, BID (TWICE DAILY)
     Dates: start: 20251010
  41. POLYCARBOPHIL [Concomitant]
     Active Substance: POLYCARBOPHIL
     Dosage: 1250 MG, OTHER~QID
     Dates: start: 20251010, end: 20251017
  42. POLYETHYLENE GLYCOL 3350 [Concomitant]
     Active Substance: POLYETHYLENE GLYCOL 3350
     Dosage: 17 GRAM, BID (TWICE DAILY)
     Dates: start: 20251010, end: 20251014
  43. SODIUM BICARBONATE [Concomitant]
     Active Substance: SODIUM BICARBONATE
     Dosage: 1000 ML, OTHER~QID
     Dates: start: 20251010, end: 20251020
  44. SODIUM CHLORIDE [Concomitant]
     Active Substance: SODIUM CHLORIDE
     Dosage: 1000 ML, CONTINUOUS
     Dates: start: 20251010, end: 20251011
  45. VALACYCLOVIR [Concomitant]
     Active Substance: VALACYCLOVIR HYDROCHLORIDE
     Dosage: 500 MG, QD
     Dates: start: 20251010
  46. BUSPIRONE [Concomitant]
     Active Substance: BUSPIRONE HYDROCHLORIDE
     Dosage: 10 MG, QD
     Dates: start: 20251011, end: 20251017
  47. FUROSEMIDE [Concomitant]
     Active Substance: FUROSEMIDE
     Dosage: 20 MG, QD
     Dates: start: 20251011
  48. IOPAMIDOL [Concomitant]
     Active Substance: IOPAMIDOL
     Dosage: 100 ML, ONCE
     Dates: start: 20251011, end: 20251011
  49. MAGNESIUM SULFATE [Concomitant]
     Active Substance: MAGNESIUM SULFATE
     Dosage: 4 GRAM, ONCE
     Dates: start: 20251011, end: 20251011
  50. MORPHINE [Concomitant]
     Active Substance: MORPHINE
     Dosage: 1 MG, OTHER~Q4H PRN
     Dates: start: 20251011, end: 20251018
  51. SENNA [Concomitant]
     Active Substance: SENNOSIDES
     Dosage: 17.2 MG, QD
     Dates: start: 20251011, end: 20251013
  52. SIMETHICONE (DIMETHICONE) [Concomitant]
     Active Substance: DIMETHICONE
     Dosage: 80 MG, OTHER~AFTER MEALS AND AT BEDTIME
     Dates: start: 20251011
  53. FENTANYL [Concomitant]
     Active Substance: FENTANYL
     Dosage: 50 OTHER~MCG/HR, OTHER~Q72 HRS
     Dates: start: 20251012
  54. GADOPICLENOL [Concomitant]
     Active Substance: GADOPICLENOL
     Dosage: 3.25 OTHER~MMOL, ONCE
     Dates: start: 20251012, end: 20251012
  55. LIDOCAINE [Concomitant]
     Active Substance: LIDOCAINE
     Dosage: 1 OTHER~PATCH, QD
     Dates: start: 20251012
  56. ONDANSETRON [Concomitant]
     Active Substance: ONDANSETRON
     Dosage: 8 MG, ONCE
     Dates: start: 20251012, end: 20251012
  57. SODIUM CHLORIDE ).9% [Concomitant]
     Dosage: 1000 ML, OTHER~Q12H
     Dates: start: 20251012
  58. MAGNESIUM SULFATE [Concomitant]
     Active Substance: MAGNESIUM SULFATE
     Dosage: 4 GRAM, ONCE
     Dates: start: 20251013, end: 20251013
  59. ONDANSETRON [Concomitant]
     Active Substance: ONDANSETRON
     Dosage: 8 MG, ONCE
     Dates: start: 20251013, end: 20251014
  60. FAMOTIDINE [Concomitant]
     Active Substance: FAMOTIDINE
     Dosage: 40 MG, OTHER~BID PRN
     Dates: start: 20251014
  61. METOPROLOL [Concomitant]
     Active Substance: METOPROLOL
     Dosage: 25 MG, ONCE
     Dates: start: 20251014, end: 20251014
  62. ACETAMINOPHEN [Concomitant]
     Active Substance: ACETAMINOPHEN
     Dosage: 650 MG, ONCE
     Dates: start: 20251015, end: 20251015
  63. ALBUTEROL\IPRATROPIUM [Concomitant]
     Active Substance: ALBUTEROL\IPRATROPIUM
     Dosage: 3 ML, OTHER~Q4HRS PRN
     Dates: start: 20251015
  64. DIPHENHYDRAMINE [Concomitant]
     Active Substance: DIPHENHYDRAMINE
     Dosage: 25 MG, ONCE
     Dates: start: 20251015, end: 20251015
  65. FLUCONAZOLE [Concomitant]
     Active Substance: FLUCONAZOLE
     Dosage: 400 MG, QD
     Dates: start: 20251015
  66. LEVOFLOXACIN [Concomitant]
     Active Substance: LEVOFLOXACIN
     Dosage: 500 MG, QD
     Dates: start: 20251015, end: 20251019
  67. MAGNESIUM SULFATE [Concomitant]
     Active Substance: MAGNESIUM SULFATE
     Dosage: 4 GRAM, ONCE
     Dates: start: 20251015, end: 20251015
  68. METOPROLOL [Concomitant]
     Active Substance: METOPROLOL
     Dosage: 50 MG, ONCE
     Dates: start: 20251015, end: 20251015
  69. POTASSIUM CHLORIDE [Concomitant]
     Active Substance: POTASSIUM CHLORIDE
     Dosage: 40 OTHER~MEQ, BID (TWICE DAILY)
     Dates: start: 20251015, end: 20251015
  70. POTASSIUM CHLORIDE [Concomitant]
     Active Substance: POTASSIUM CHLORIDE
     Dosage: 20 OTHER~MEG, BID (TWICE DAILY)
     Dates: start: 20251015, end: 20251016
  71. SULFAMETHOXAZOLE\TRIMETHOPRIM [Concomitant]
     Active Substance: SULFAMETHOXAZOLE\TRIMETHOPRIM
     Dosage: 800-160 MG, OTHER~Q24 HRS
     Dates: start: 20251015, end: 20251015
  72. ACETAMINOPHEN [Concomitant]
     Active Substance: ACETAMINOPHEN
     Dosage: 650 MG, OTHER~Q6HRS
     Dates: start: 20251016, end: 20251017
  73. CHOLECALCIFEROL [Concomitant]
     Active Substance: CHOLECALCIFEROL
     Dosage: 50 MCG, QD
     Dates: start: 20251016
  74. DIPHENHYDRAMINE [Concomitant]
     Active Substance: DIPHENHYDRAMINE
     Dosage: 25 MG, OTHER~Q6HRS
     Dates: start: 20251016, end: 20251017
  75. FAMOTIDINE [Concomitant]
     Active Substance: FAMOTIDINE
     Dosage: 20 MG, BID (TWICE DAILY)
     Dates: start: 20251016, end: 20251017
  76. FILGRASTIM [Concomitant]
     Active Substance: FILGRASTIM
     Dosage: 300 MCG, QD
     Dates: start: 20251016
  77. MORPHINE [Concomitant]
     Active Substance: MORPHINE
     Dosage: 1 MG, OTHER~Q1HR PRN
     Dates: start: 20251016
  78. ONDANSETRON [Concomitant]
     Active Substance: ONDANSETRON
     Dosage: 8 MG, QD
     Dates: start: 20251016, end: 20251016
  79. OXYCODONE [Concomitant]
     Active Substance: OXYCODONE
     Dosage: 10 MG, ONCE
     Dates: start: 20251016, end: 20251016
  80. SODIUM PHOSPHATE [Concomitant]
     Active Substance: SODIUM PHOSPHATE
     Dosage: 15 OTHER~MMOL, ONCE
     Dates: start: 20251016, end: 20251016
  81. BUSPIRONE [Concomitant]
     Active Substance: BUSPIRONE HYDROCHLORIDE
     Dosage: 10 MG, QD
     Dates: start: 20251017, end: 20251018
  82. CALCIUM GLUCONATE [Concomitant]
     Active Substance: CALCIUM GLUCONATE
     Dosage: 2 GRAM, ONCE
     Dates: start: 20251017, end: 20251017
  83. MAGNESIUM SULFATE [Concomitant]
     Active Substance: MAGNESIUM SULFATE
     Dosage: 2 GRAM, ONCE
     Dates: start: 20251017, end: 20251017
  84. SODIUM PHOSPHATE [Concomitant]
     Active Substance: SODIUM PHOSPHATE
     Dosage: 40 OTHER~MMOL, ONCE
     Dates: start: 20251017, end: 20251017
  85. SULFAMETHOXAZOLE\TRIMETHOPRIM [Concomitant]
     Active Substance: SULFAMETHOXAZOLE\TRIMETHOPRIM
     Dosage: 800-160 MG, OTHER~MONDAY/WEDNESDAY/FRIDAY
     Dates: start: 20251017
  86. BUSPIRONE [Concomitant]
     Active Substance: BUSPIRONE HYDROCHLORIDE
     Dosage: 10 MG, BID (TWICE DAILY)
     Dates: start: 20251018
  87. FENTANYL [Concomitant]
     Active Substance: FENTANYL
     Dosage: 75 MCG, OTHER~Q72HRS
     Dates: start: 20251018
  88. MORPHINE [Concomitant]
     Active Substance: MORPHINE
     Dosage: 2 MG, OTHER~Q2HRS PRN
     Dates: start: 20251018
  89. PROCHLORPERAZINE [Concomitant]
     Active Substance: PROCHLORPERAZINE
     Dosage: 10 MG, OTHER~Q6HRS PRN
     Dates: start: 20251018
  90. DOCUSATE-SENNA [Concomitant]
     Dosage: 50-8.6 MG, BID (TWICE DAILY)
     Dates: start: 20251019
  91. MAGNESIUM SULFATE [Concomitant]
     Active Substance: MAGNESIUM SULFATE
     Dosage: 4 GRAM, ONCE
     Dates: start: 20251019, end: 20251019
  92. POLYETHYLENE GLYCOL 3350 [Concomitant]
     Active Substance: POLYETHYLENE GLYCOL 3350
     Dosage: 17 GRAM, PRN (AS NEEDED)
     Dates: start: 20251019
  93. SENNA [Concomitant]
     Active Substance: SENNOSIDES
     Dosage: 8.6 MG, OTHER~QD PRN
     Dates: start: 20251019, end: 20251019
  94. ZOLPIDEM [Concomitant]
     Active Substance: ZOLPIDEM TARTRATE
     Dosage: 5 MG, ONCE
     Dates: start: 20251019, end: 20251019
  95. FENTANYL [Concomitant]
     Active Substance: FENTANYL
     Dosage: 75 MCG, OTHER~Q72 HRS
     Dates: start: 20251020
  96. SODIUM PHOSPHATE [Concomitant]
     Active Substance: SODIUM PHOSPHATE
     Dosage: 15 OTHER~MMOL, ONCE
     Dates: start: 20251020, end: 20251020

REACTIONS (5)
  - Hypervolaemia [Not Recovered/Not Resolved]
  - Generalised oedema [Not Recovered/Not Resolved]
  - Abdominal pain [Unknown]
  - Dyspnoea [Unknown]
  - Vaginal fistula [Unknown]

NARRATIVE: CASE EVENT DATE: 20251001
